FAERS Safety Report 5351314-2 (Version None)
Quarter: 2007Q2

REPORT INFORMATION
  Report Type: 
  Country: None (occurrence: None)
  Receive Date: 20070608
  Receipt Date: 20070529
  Transmission Date: 20071010
  Serious: Yes (Other)
  Sender: FDA-Public Use
  Company Number: US-PFIZER INC-2007044985

PATIENT

DRUGS (3)
  1. CADUET [Suspect]
  2. LIPITOR [Suspect]
  3. NORVASC [Suspect]

REACTIONS (1)
  - ALANINE AMINOTRANSFERASE INCREASED [None]
